FAERS Safety Report 10285323 (Version 1)
Quarter: 2014Q3

REPORT INFORMATION
  Report Type: Spontaneous
  Country: US (occurrence: None)
  Receive Date: 20140702
  Receipt Date: 20140702
  Transmission Date: 20150326
  Serious: Yes (Other)
  Sender: FDA-Public Use
  Company Number: 54973 AE # 1543

PATIENT
  Age: 3 Month
  Sex: Female

DRUGS (1)
  1. BABY TEETHING [Suspect]
     Active Substance: ARABICA COFFEE BEAN\ATROPA BELLADONNA\CALCIUM PHOSPHATE\CHAMOMILE
     Indication: TEETHING
     Dosage: 1 TAB SL PRN; UP TO 4X/DY

REACTIONS (2)
  - Tremor [None]
  - Dry mouth [None]

NARRATIVE: CASE EVENT DATE: 201405
